FAERS Safety Report 21389240 (Version 1)
Quarter: 2022Q3

REPORT INFORMATION
  Report Type: Spontaneous
  Country: DE (occurrence: DE)
  Receive Date: 20220929
  Receipt Date: 20220929
  Transmission Date: 20221026
  Serious: Yes (Hospitalization, Other)
  Sender: FDA-Public Use
  Company Number: DE-ADRED-08133-01

PATIENT
  Age: 75 Year
  Sex: Male
  Weight: 85 kg

DRUGS (8)
  1. CARVEDILOL [Suspect]
     Active Substance: CARVEDILOL
     Indication: Product used for unknown indication
     Dosage: 25 MILLIGRAM (25 MG, 1-0-1-0, TABLETTEN)
     Route: 048
  2. ASPIRIN [Concomitant]
     Active Substance: ASPIRIN
     Indication: Product used for unknown indication
     Dosage: 100 MILLIGRAM (100 MG, 0-1-0-0, TABLETTEN)
     Route: 048
  3. ATORVASTATIN [Concomitant]
     Active Substance: ATORVASTATIN
     Indication: Product used for unknown indication
     Dosage: 40 MILLIGRAM (40 MG, 0-0-1-0, TABLETTEN)
     Route: 048
  4. AMLODIPINE BESYLATE [Concomitant]
     Active Substance: AMLODIPINE BESYLATE
     Indication: Product used for unknown indication
     Dosage: 5 MILLIGRAM (5 MG, 1-0-1-0, TABLETTEN)
     Route: 048
  5. GLIMEPIRIDE [Concomitant]
     Active Substance: GLIMEPIRIDE
     Indication: Product used for unknown indication
     Dosage: 2 MILLIGRAM(2 MG, 1-0-0-0, TABLETTEN)
     Route: 048
  6. METFORMIN\SITAGLIPTIN [Concomitant]
     Active Substance: METFORMIN\SITAGLIPTIN
     Indication: Product used for unknown indication
     Dosage: 1000|50 MG, 1-0-1-0, TABLETTEN
     Route: 048
  7. RAMIPRIL [Concomitant]
     Active Substance: RAMIPRIL
     Indication: Product used for unknown indication
     Dosage: 5 MILLIGRAM (5 MG, 0-0-1-0, TABLETTEN)
     Route: 048
  8. HYDROCHLOROTHIAZIDE\RAMIPRIL [Concomitant]
     Active Substance: HYDROCHLOROTHIAZIDE\RAMIPRIL
     Indication: Product used for unknown indication
     Dosage: 25|5 MG, 1-0-0-0, TABLETTEN
     Route: 048

REACTIONS (4)
  - Arrhythmia [Unknown]
  - Atrial fibrillation [Unknown]
  - Bradycardia [Unknown]
  - Dizziness [Unknown]
